FAERS Safety Report 18404573 (Version 2)
Quarter: 2020Q4

REPORT INFORMATION
  Report Type: Spontaneous
  Country: US (occurrence: US)
  Receive Date: 20201020
  Receipt Date: 20201020
  Transmission Date: 20210114
  Serious: No
  Sender: FDA-Public Use
  Company Number: US-PFIZER INC-2020403539

PATIENT
  Sex: Female
  Weight: 76.66 kg

DRUGS (2)
  1. PREMARIN [Suspect]
     Active Substance: ESTROGENS, CONJUGATED
     Indication: CYSTITIS
     Dosage: 0.5 MG, CYCLIC (IN THE APPLICATOR EVERY DAY FOR 3 WEEKS THEN OFF A WEEK)
  2. MEDROXYPROGESTERONE ACETATE. [Suspect]
     Active Substance: MEDROXYPROGESTERONE ACETATE
     Dosage: 10 MG, CYCLIC (EVERY 3RD MONTH FOR 10 DAYS)

REACTIONS (4)
  - Drug effective for unapproved indication [Unknown]
  - Weight increased [Not Recovered/Not Resolved]
  - Product use in unapproved indication [Unknown]
  - Off label use [Unknown]
